FAERS Safety Report 10660669 (Version 9)
Quarter: 2015Q4

REPORT INFORMATION
  Report Type: Spontaneous
  Country: US (occurrence: US)
  Receive Date: 20141217
  Receipt Date: 20151007
  Transmission Date: 20160304
  Serious: No
  Sender: FDA-Public Use
  Company Number: US-GLAXOSMITHKLINE-A1089783A

PATIENT
  Sex: Male

DRUGS (1)
  1. VOTRIENT [Suspect]
     Active Substance: PAZOPANIB HYDROCHLORIDE
     Indication: THYROID CANCER
     Dosage: 800 MG, QD
     Route: 048
     Dates: start: 20130711

REACTIONS (13)
  - Lacrimation increased [Not Recovered/Not Resolved]
  - Diarrhoea [Unknown]
  - Dyspepsia [Unknown]
  - Hair colour changes [Unknown]
  - Skin atrophy [Unknown]
  - Erythema [Unknown]
  - Asthenia [Unknown]
  - Skin irritation [Unknown]
  - Nausea [Unknown]
  - Decreased appetite [Unknown]
  - Hair disorder [Unknown]
  - Muscular weakness [Unknown]
  - Alopecia [Unknown]
